FAERS Safety Report 12323245 (Version 1)
Quarter: 2016Q2

REPORT INFORMATION
  Report Type: Spontaneous
  Country: CN (occurrence: CN)
  Receive Date: 20160502
  Receipt Date: 20160502
  Transmission Date: 20160815
  Serious: Yes (Death, Hospitalization)
  Sender: FDA-Public Use
  Company Number: CN-JNJFOC-20160420763

PATIENT
  Age: 30 Year
  Sex: Female
  Weight: 54 kg

DRUGS (2)
  1. SPORANOX [Suspect]
     Active Substance: ITRACONAZOLE
     Indication: DERMATOPHYTOSIS OF NAIL
     Dosage: 0.2 (UNITS NOT REPORTED) TWICE DAILY FOR 7 DAYS
     Route: 048
     Dates: start: 2014
  2. SPORANOX [Suspect]
     Active Substance: ITRACONAZOLE
     Indication: DERMATOPHYTOSIS OF NAIL
     Dosage: 0.1 (UNITS NOT REPORTED)
     Route: 048
     Dates: start: 2014, end: 2014

REACTIONS (5)
  - Drug-induced liver injury [Unknown]
  - Haemorrhage intracranial [Fatal]
  - Aplastic anaemia [Fatal]
  - Upper gastrointestinal haemorrhage [Unknown]
  - Lung infection [Unknown]

NARRATIVE: CASE EVENT DATE: 20141101
